FAERS Safety Report 4352192-0 (Version None)
Quarter: 2004Q2

REPORT INFORMATION
  Report Type: 
  Country: None (occurrence: None)
  Receive Date: 20040428
  Receipt Date: 20040414
  Transmission Date: 20050107
  Serious: Yes (Other)
  Sender: FDA-Public Use
  Company Number: FR_040303752

PATIENT
  Age: 73 Year
  Sex: Female
  Weight: 52 kg

DRUGS (7)
  1. EVISTA [Suspect]
     Indication: OSTEOPOROSIS
     Dosage: 60 MG/1 DAY
     Dates: start: 20020801, end: 20031230
  2. PREDNISOLONE [Concomitant]
  3. POTASSIUM CHLORIDE [Concomitant]
  4. DENSICAL VITAMINE D3 [Concomitant]
  5. OMEPRAZOLE [Concomitant]
  6. DAFLON (DIOSMIN) [Concomitant]
  7. PARACETAMOL WITH CODEINE [Concomitant]

REACTIONS (1)
  - CEREBROVASCULAR ACCIDENT [None]
